FAERS Safety Report 6148299-8 (Version None)
Quarter: 2009Q2

REPORT INFORMATION
  Report Type: 
  Country: None (occurrence: None)
  Receive Date: 20090408
  Receipt Date: 20090402
  Transmission Date: 20091009
  Serious: Yes (Other)
  Sender: FDA-Public Use
  Company Number: AR-SANOFI-SYNTHELABO-F01200900325

PATIENT
  Sex: Male

DRUGS (2)
  1. OXALIPLATINO [Suspect]
     Indication: DRUG USE FOR UNKNOWN INDICATION
     Dosage: UNK
     Route: 042
  2. CAPECITABINE [Suspect]
     Indication: COLON CANCER
     Route: 048
     Dates: start: 20090202, end: 20090202

REACTIONS (1)
  - DISEASE PROGRESSION [None]
